FAERS Safety Report 10213096 (Version 2)
Quarter: 2014Q2

REPORT INFORMATION
  Report Type: Spontaneous
  Country: FR (occurrence: FR)
  Receive Date: 20140603
  Receipt Date: 20140603
  Transmission Date: 20141212
  Serious: Yes (Other)
  Sender: FDA-Public Use
  Company Number: FR-AMGEN-FRASP2014018726

PATIENT
  Age: 73 Year
  Sex: Female
  Weight: 44 kg

DRUGS (5)
  1. PROLIA [Suspect]
     Indication: OSTEOPOROSIS POSTMENOPAUSAL
     Dosage: 60 MG, Q6MO
     Route: 058
     Dates: start: 20140114
  2. LEVOTHYROX [Concomitant]
     Dosage: 50 UNK, QD
     Route: 048
  3. OROCAL D3 [Concomitant]
     Dosage: UNK UNK, BID
     Route: 048
  4. CRESTOR [Concomitant]
     Dosage: 5 UNK, 3 TIMES/WK
     Route: 048
  5. EZETROL [Concomitant]
     Dosage: 10 UNK, 3 TIMES/WK
     Route: 048

REACTIONS (1)
  - Escherichia pyelonephritis [Recovered/Resolved]
